FAERS Safety Report 6593322-X (Version None)
Quarter: 2010Q1

REPORT INFORMATION
  Report Type: 
  Country: None (occurrence: None)
  Receive Date: 20100222
  Receipt Date: 20090323
  Transmission Date: 20100710
  Serious: No
  Sender: FDA-Public Use
  Company Number: US-BRISTOL-MYERS SQUIBB COMPANY-14483739

PATIENT
  Age: 75 Year
  Sex: Female

DRUGS (4)
  1. ORENCIA [Suspect]
     Indication: RHEUMATOID ARTHRITIS
     Route: 042
     Dates: start: 20080130, end: 20080430
  2. METHOTREXATE [Concomitant]
  3. SULFASALAZINE [Concomitant]
  4. PREDNISONE [Concomitant]

REACTIONS (1)
  - HERPES ZOSTER [None]
